FAERS Safety Report 4638908-4 (Version None)
Quarter: 2005Q2

REPORT INFORMATION
  Report Type: 
  Country: None (occurrence: None)
  Receive Date: 20050415
  Receipt Date: 20050404
  Transmission Date: 20051028
  Serious: Yes (Life-Threatening)
  Sender: FDA-Public Use
  Company Number: FR_041205430

PATIENT
  Age: 46 Year
  Sex: Female
  Weight: 60 kg

DRUGS (2)
  1. PROZAC [Suspect]
     Indication: DEPRESSION
     Dates: end: 20040903
  2. DAFLON (DIOSMIN) [Concomitant]

REACTIONS (3)
  - ANAEMIA [None]
  - CEREBRAL HAEMATOMA [None]
  - HEMIPLEGIA [None]
